FAERS Safety Report 6760070-2 (Version None)
Quarter: 2010Q2

REPORT INFORMATION
  Report Type: 
  Country: None (occurrence: None)
  Receive Date: 20100608
  Receipt Date: 20100531
  Transmission Date: 20101027
  Serious: Yes (Death, Other)
  Sender: FDA-Public Use
  Company Number: NL-B.I. PHARMACEUTICALS,INC./RIDGEFIELD-2010-NL-00244NL

PATIENT
  Age: 67 Year
  Sex: Male
  Weight: 70 kg

DRUGS (3)
  1. SIFROL [Suspect]
     Route: 048
  2. CYMBALTA [Concomitant]
     Route: 048
  3. TRAMADOL [Concomitant]

REACTIONS (1)
  - OESOPHAGEAL CARCINOMA [None]
